FAERS Safety Report 17206182 (Version 1)
Quarter: 2020Q1

REPORT INFORMATION
  Report Type: Spontaneous
  Country: CA (occurrence: CA)
  Receive Date: 20191222
  Receipt Date: 20191222
  Transmission Date: 20200409
  Serious: No
  Sender: FDA-Public Use
  Company Number: None

PATIENT
  Age: 66 Year
  Sex: Female
  Weight: 67.5 kg

DRUGS (3)
  1. OVER 50 VITAMIN SUPPLEMENT [Concomitant]
  2. STATIN [Concomitant]
     Active Substance: UNSPECIFIED INGREDIENT
  3. U DREAM [Suspect]
     Active Substance: HERBALS
     Indication: INSOMNIA
     Dosage: ?          QUANTITY:1 CAPSULE(S);?
     Route: 048
     Dates: start: 20180501, end: 20191017

REACTIONS (3)
  - Palpitations [None]
  - Dizziness [None]
  - Feeling hot [None]

NARRATIVE: CASE EVENT DATE: 20190518
